FAERS Safety Report 19175716 (Version 4)
Quarter: 2021Q3

REPORT INFORMATION
  Report Type: Report from Study
  Country: CZ (occurrence: CZ)
  Receive Date: 20210423
  Receipt Date: 20210915
  Transmission Date: 20211014
  Serious: Yes (Life-Threatening, Hospitalization, Other)
  Sender: FDA-Public Use
  Company Number: CZ-EXELIXIS-XL18421039513

PATIENT
  Age: 64 Year
  Sex: Female
  Weight: 55 kg

DRUGS (14)
  1. ELICEA [Concomitant]
     Active Substance: ESCITALOPRAM OXALATE
  2. COAXIL [Concomitant]
     Active Substance: TIANEPTINE SODIUM
  3. KINITO [Concomitant]
  4. IPILIMUMAB [Suspect]
     Active Substance: IPILIMUMAB
     Indication: RENAL CELL CARCINOMA
     Dosage: 1 MG/KG, Q3WEEKS, 4 DOSES
     Route: 042
     Dates: start: 20210311
  5. MICTONORM [Concomitant]
     Active Substance: PROPIVERINE HYDROCHLORIDE
  6. CALTRATE [Concomitant]
     Active Substance: CALCIUM CARBONATE
  7. XL184 [Suspect]
     Active Substance: CABOZANTINIB
     Indication: RENAL CELL CARCINOMA
     Dosage: 40 MG, QD
     Route: 048
     Dates: start: 20210311, end: 20210415
  8. PRENEWEL [Concomitant]
     Active Substance: INDAPAMIDE\PERINDOPRIL ERBUMINE
  9. DENOSUMAB [Concomitant]
     Active Substance: DENOSUMAB
  10. NIVOLUMAB [Suspect]
     Active Substance: NIVOLUMAB
     Indication: RENAL CELL CARCINOMA
     Dosage: 3 MG/KG, Q3WEEKS, 4 DOSES
     Route: 042
     Dates: start: 20210311
  11. ROVASTIN [Concomitant]
  12. EUTHYROX [Concomitant]
     Active Substance: LEVOTHYROXINE SODIUM
  13. DUSPATALIN [Concomitant]
     Active Substance: MEBEVERINE
  14. LOPERON [Concomitant]

REACTIONS (1)
  - Hepatotoxicity [Recovered/Resolved]

NARRATIVE: CASE EVENT DATE: 20210415
